FAERS Safety Report 10179389 (Version 1)
Quarter: 2014Q2

REPORT INFORMATION
  Report Type: Spontaneous
  Country: US (occurrence: US)
  Receive Date: 20140519
  Receipt Date: 20140519
  Transmission Date: 20141212
  Serious: No
  Sender: FDA-Public Use
  Company Number: US-TEVA-482197USA

PATIENT
  Age: 25 Year
  Sex: Female

DRUGS (2)
  1. PARAGARD 380A [Suspect]
     Indication: CONTRACEPTION
     Route: 015
     Dates: start: 201308, end: 20140130
  2. VALTREX [Concomitant]
     Indication: GENITAL HERPES
     Route: 048

REACTIONS (2)
  - Smear cervix abnormal [Unknown]
  - Device expulsion [Recovered/Resolved]
